FAERS Safety Report 10501451 (Version 1)
Quarter: 2014Q4

REPORT INFORMATION
  Report Type: Spontaneous
  Country: AU (occurrence: AU)
  Receive Date: 20141007
  Receipt Date: 20141007
  Transmission Date: 20150528
  Serious: Yes (Other)
  Sender: FDA-Public Use
  Company Number: CHPA2014AU013235

PATIENT
  Sex: Male

DRUGS (4)
  1. PANADOL [Concomitant]
     Active Substance: ACETAMINOPHEN
     Route: 048
  2. PANADEINE [Concomitant]
     Active Substance: ACETAMINOPHEN\CODEINE PHOSPHATE
     Dosage: UNK, BID
     Route: 048
  3. VOLTAREN [Suspect]
     Active Substance: DICLOFENAC SODIUM
     Dosage: 25 MG, TIW
     Route: 048
  4. VOLTAREN [Suspect]
     Active Substance: DICLOFENAC SODIUM
     Indication: MYALGIA
     Dosage: UNK
     Route: 061

REACTIONS (6)
  - Incorrect drug administration duration [Unknown]
  - Back injury [Unknown]
  - Dysuria [Unknown]
  - Fall [Unknown]
  - Sensory loss [Unknown]
  - Pain [Unknown]

NARRATIVE: CASE EVENT DATE: 2006
